FAERS Safety Report 7666022 (Version 3)
Quarter: 2013Q4

REPORT INFORMATION
  Report Type: Spontaneous
  Country: US (occurrence: US)
  Receive Date: 20101112
  Receipt Date: 20131230
  Transmission Date: 20140711
  Serious: Yes (Hospitalization, Other)
  Sender: FDA-Public Use
  Company Number: US-BAYER-201040499NA

PATIENT
  Age: 32 Year
  Sex: Female
  Weight: 122 kg

DRUGS (12)
  1. YAZ [Suspect]
     Indication: PREMENSTRUAL DYSPHORIC DISORDER
     Dosage: UNK UNK, UNK
     Route: 048
     Dates: start: 200901, end: 20100215
  2. YAZ [Suspect]
     Indication: PREMENSTRUAL SYNDROME
  3. FIORICET [Concomitant]
     Indication: PAIN
     Dosage: UNK
     Dates: start: 200708
  4. ALBUTEROL [Concomitant]
     Dosage: UNK
     Dates: start: 200401
  5. ADVAIR [Concomitant]
     Dosage: 1 PUFF(S), BID
     Route: 055
     Dates: start: 200401
  6. SYNTHROID [Concomitant]
     Indication: THYROID DISORDER
     Dosage: 75 ?G, QD
     Route: 048
     Dates: start: 199708
  7. PROZAC [Concomitant]
     Indication: DEPRESSION
     Dosage: 20 MG, QD
     Route: 048
  8. LORATADINE [Concomitant]
     Dosage: 10 MG, QD
  9. VENTOLIN [Concomitant]
     Indication: ASTHMA
     Dosage: 2 PUFF(S), UNK
     Route: 055
  10. OMEPRAZOLE [Concomitant]
     Indication: GASTROOESOPHAGEAL REFLUX DISEASE
     Dosage: 20 MG, QD
     Route: 048
  11. FLONASE [Concomitant]
     Indication: ASTHMA
     Dosage: UNK UNK, TID
  12. BELLADONNA EXTRACT [Concomitant]
     Dosage: UNK
     Route: 048
     Dates: start: 20100117

REACTIONS (4)
  - Cholecystitis chronic [None]
  - Cholelithiasis [None]
  - Cholecystectomy [Unknown]
  - Mental disorder [None]
